FAERS Safety Report 24702600 (Version 1)
Quarter: 2024Q4

REPORT INFORMATION
  Report Type: Spontaneous
  Country: US (occurrence: US)
  Receive Date: 20241205
  Receipt Date: 20241205
  Transmission Date: 20250115
  Serious: Yes (Hospitalization, Other)
  Sender: GLENMARK
  Company Number: US-MLMSERVICE-20241118-PI261283-00200-1

PATIENT

DRUGS (13)
  1. OXCARBAZEPINE [Suspect]
     Active Substance: OXCARBAZEPINE
     Indication: Product used for unknown indication
     Dosage: 600 MILLIGRAM, BID
     Route: 065
  2. SEVELAMER [Suspect]
     Active Substance: SEVELAMER
     Indication: Product used for unknown indication
     Dosage: 2400 MILLIGRAM, TID
     Route: 065
  3. LEVOTHYROXINE [Suspect]
     Active Substance: LEVOTHYROXINE
     Indication: Autoimmune thyroiditis
     Dosage: 150 MICROGRAM, QD
     Route: 048
  4. LEVOTHYROXINE [Suspect]
     Active Substance: LEVOTHYROXINE
     Dosage: 175 MICROGRAM, AM (IN THE MORNING EMPTY STOMACH-THE PATIENT REPORTED TAKING LEVOTHYROXINE DAILY AT 4
     Route: 048
  5. OXYCODONE [Concomitant]
     Active Substance: OXYCODONE
     Indication: Product used for unknown indication
     Dosage: 5 MILLIGRAM, PRN (5 MILLIGRAM EVERY 4 HOURS)
     Route: 065
  6. ALBUTEROL [Concomitant]
     Active Substance: ALBUTEROL
     Indication: Product used for unknown indication
     Dosage: UNK, QID (AS NEEDED)
     Route: 065
  7. ATORVASTATIN [Concomitant]
     Active Substance: ATORVASTATIN
     Indication: Product used for unknown indication
     Dosage: 40 MILLIGRAM, QD
     Route: 065
  8. CALCITRIOL [Concomitant]
     Active Substance: CALCITRIOL
     Indication: Product used for unknown indication
     Dosage: 1 MICROGRAM (THREE TIMES PER WEEK)
     Route: 065
  9. ONDANSETRON [Concomitant]
     Active Substance: ONDANSETRON
     Indication: Product used for unknown indication
     Dosage: 2 MILLIGRAM, QD (AS NEEDED)
     Route: 065
  10. CARVEDILOL [Concomitant]
     Active Substance: CARVEDILOL
     Indication: Product used for unknown indication
     Dosage: 25 MILLIGRAM, BID (INCREASE IN CARVEDILOL DOSE TO 25 MG TWICE PER DAY)
     Route: 065
  11. LISINOPRIL [Concomitant]
     Active Substance: LISINOPRIL
     Indication: Product used for unknown indication
     Dosage: 20 MILLIGRAM, QD
     Route: 065
  12. NIFEDIPINE [Concomitant]
     Active Substance: NIFEDIPINE
     Indication: Product used for unknown indication
     Dosage: 90 MILLIGRAM, QD
     Route: 065
  13. OLODATEROL\TIOTROPIUM [Concomitant]
     Active Substance: OLODATEROL\TIOTROPIUM
     Indication: Product used for unknown indication
     Dosage: 2 DOSAGE FORM (2 PUFFS DAILY, AS NEEDED)
     Route: 065

REACTIONS (3)
  - Hypertensive urgency [Recovered/Resolved]
  - Hypothyroidism [Recovered/Resolved]
  - Therapeutic response decreased [Unknown]
